FAERS Safety Report 19528350 (Version 5)
Quarter: 2021Q3

REPORT INFORMATION
  Report Type: Other
  Country: CA (occurrence: CA)
  Receive Date: 20210713
  Receipt Date: 20210827
  Transmission Date: 20211014
  Serious: Yes (Other)
  Sender: FDA-Public Use
  Company Number: CA-ROCHE-2356108

PATIENT
  Age: 65 Year
  Sex: Female
  Weight: 49.4 kg

DRUGS (18)
  1. FUCIDIN [Concomitant]
     Active Substance: FUSIDATE SODIUM
     Indication: ROSACEA
     Dosage: BEDTIME
  2. TACROLIMUS. [Concomitant]
     Active Substance: TACROLIMUS
  3. ZOPICLONE [Concomitant]
     Active Substance: ZOPICLONE
     Indication: PRODUCT USED FOR UNKNOWN INDICATION
  4. PMS?VALACYCLOVIR [Concomitant]
  5. VITAMIN C [Concomitant]
     Active Substance: ASCORBIC ACID
  6. CELLCEPT [Suspect]
     Active Substance: MYCOPHENOLATE MOFETIL\MYCOPHENOLATE MOFETIL HYDROCHLORIDE
     Indication: PRODUCT USED FOR UNKNOWN INDICATION
     Route: 065
  7. BENADRYL [Concomitant]
     Active Substance: DIPHENHYDRAMINE HYDROCHLORIDE
     Indication: PREMEDICATION
     Route: 048
     Dates: start: 20130813
  8. RITUXAN [Suspect]
     Active Substance: RITUXIMAB
     Indication: PEMPHIGUS
     Dosage: MOST RECENT DOSE ON 26/AUG/2013?ONGOING
     Route: 042
     Dates: start: 20130813
  9. SOLU?MEDROL [Concomitant]
     Active Substance: METHYLPREDNISOLONE SODIUM SUCCINATE
     Indication: PREMEDICATION
     Route: 042
     Dates: start: 20130813
  10. MIRTAZAPINE. [Concomitant]
     Active Substance: MIRTAZAPINE
     Indication: PRODUCT USED FOR UNKNOWN INDICATION
     Route: 048
  11. KENALOG [Concomitant]
     Active Substance: TRIAMCINOLONE ACETONIDE
     Indication: PRODUCT USED FOR UNKNOWN INDICATION
  12. APO?CLOPIDOGREL [Concomitant]
     Active Substance: CLOPIDOGREL BISULFATE
     Indication: ANTICOAGULANT THERAPY
  13. MYFORTIC [Concomitant]
     Active Substance: MYCOPHENOLATE SODIUM
     Route: 048
  14. DEPO?MEDROL [Concomitant]
     Active Substance: METHYLPREDNISOLONE ACETATE
     Indication: ARTHRALGIA
  15. COVID?19 VACCINE [Concomitant]
     Dates: start: 202104
  16. DUOLUBE [Concomitant]
  17. TYLENOL [Concomitant]
     Active Substance: ACETAMINOPHEN
     Indication: PREMEDICATION
     Route: 048
     Dates: start: 20130813
  18. FLUOROMETHOLONE. [Concomitant]
     Active Substance: FLUOROMETHOLONE

REACTIONS (19)
  - Eye infection viral [Unknown]
  - Pemphigus [Not Recovered/Not Resolved]
  - Rib fracture [Unknown]
  - Depression [Unknown]
  - Sleep disorder [Unknown]
  - Dyslipidaemia [Unknown]
  - Cerebrovascular accident [Unknown]
  - Glucose tolerance impaired [Unknown]
  - Weight increased [Unknown]
  - Arthropathy [Unknown]
  - Ophthalmic herpes simplex [Unknown]
  - Off label use [Unknown]
  - Rosacea [Not Recovered/Not Resolved]
  - Ill-defined disorder [Unknown]
  - Pain [Not Recovered/Not Resolved]
  - Pruritus [Not Recovered/Not Resolved]
  - Blood cholesterol increased [Unknown]
  - Skin disorder [Not Recovered/Not Resolved]
  - Dry eye [Unknown]

NARRATIVE: CASE EVENT DATE: 201907
